FAERS Safety Report 4509850-4 (Version None)
Quarter: 2004Q4

REPORT INFORMATION
  Report Type: 
  Country: None (occurrence: None)
  Receive Date: 20041119
  Receipt Date: 20041108
  Transmission Date: 20050328
  Serious: Yes (Hospitalization)
  Sender: FDA-Public Use
  Company Number: 2004090809

PATIENT
  Age: 74 Year
  Sex: Female
  Weight: 40.2 kg

DRUGS (2)
  1. CABERGOLINE [Suspect]
     Indication: PARKINSON'S DISEASE
     Dosage: 0.5 MG, ORAL
     Route: 048
     Dates: start: 20000701
  2. MADOPAR (BENSERAZIDE HYDROCHLORIE, LEVODOPA) [Concomitant]

REACTIONS (3)
  - BLOOD PRESSURE SYSTOLIC INCREASED [None]
  - MOVEMENT DISORDER [None]
  - MUSCLE DISORDER [None]
